FAERS Safety Report 6762452-1 (Version None)
Quarter: 2010Q2

REPORT INFORMATION
  Report Type: 
  Country: None (occurrence: None)
  Receive Date: 20100609
  Receipt Date: 20100528
  Transmission Date: 20101027
  Serious: Yes (Death)
  Sender: FDA-Public Use
  Company Number: GB-ELI_LILLY_AND_COMPANY-GB201005007547

PATIENT
  Age: 27 Year
  Sex: Male
  Weight: 55.329 kg

DRUGS (4)
  1. OLANZAPINE [Suspect]
     Indication: ANXIETY
     Dosage: 5 MG, 4/D
  2. CITALOPRAM [Concomitant]
     Indication: DEPRESSION
     Dosage: 40 MG, UNK
  3. DF118 [Concomitant]
     Dosage: 30 MG, 4/D
  4. GABAPENTIN [Concomitant]
     Dosage: 300 MG, UNK

REACTIONS (2)
  - ARTERIOSCLEROSIS CORONARY ARTERY [None]
  - OFF LABEL USE [None]
